FAERS Safety Report 23566922 (Version 1)
Quarter: 2024Q1

REPORT INFORMATION
  Report Type: Spontaneous
  Country: US (occurrence: US)
  Receive Date: 20240226
  Receipt Date: 20240226
  Transmission Date: 20240409
  Serious: No
  Sender: FDA-Public Use
  Company Number: US-AMNEAL PHARMACEUTICALS-2023-AMRX-03005

PATIENT
  Sex: Male

DRUGS (6)
  1. RYTARY [Suspect]
     Active Substance: CARBIDOPA\LEVODOPA
     Indication: Product used for unknown indication
     Dosage: 2 CAPSULES, 4 /DAY (48.75-195 MG)
     Route: 048
  2. RYTARY [Suspect]
     Active Substance: CARBIDOPA\LEVODOPA
     Dosage: 1 CAPSULE OF 48.75-195 MG TWICE A DAY AND 1 CAPSULE OF 23.75-95 MG AT BEDTIME
     Route: 048
     Dates: start: 20230223
  3. RYTARY [Suspect]
     Active Substance: CARBIDOPA\LEVODOPA
     Dosage: 3 CAPSULES PER DAY OF 48.75-195 MG FOR 1 MONTH
     Route: 048
  4. RYTARY [Suspect]
     Active Substance: CARBIDOPA\LEVODOPA
     Dosage: 23. 75-95 MG, 1 CAPSULE 3 TIMES A DAY
     Route: 048
     Dates: start: 20230908
  5. RYTARY [Suspect]
     Active Substance: CARBIDOPA\LEVODOPA
     Dosage: (23. 75-95 MG) 1 CAPSULES, 2 /DAY
     Route: 048
     Dates: start: 20231218
  6. RYTARY [Suspect]
     Active Substance: CARBIDOPA\LEVODOPA
     Dosage: (48.75-195 MG) 1 CAPSULES, 2 /DAY
     Route: 048
     Dates: start: 20231218

REACTIONS (1)
  - On and off phenomenon [Unknown]
